FAERS Safety Report 12754901 (Version 1)
Quarter: 2016Q3

REPORT INFORMATION
  Report Type: Report from Study
  Country: CN (occurrence: CN)
  Receive Date: 20160916
  Receipt Date: 20160916
  Transmission Date: 20161109
  Serious: Yes (Hospitalization, Other)
  Sender: FDA-Public Use
  Company Number: CN-OTSUKA-JP-2011-11406

PATIENT
  Age: 49 Year
  Sex: Male

DRUGS (9)
  1. CILOSTAZOL. [Suspect]
     Active Substance: CILOSTAZOL
     Indication: DIABETIC NEPHROPATHY
     Dosage: 100 MG, BID
     Route: 048
     Dates: start: 20101001, end: 20110901
  2. PROBUCOL [Suspect]
     Active Substance: PROBUCOL
     Indication: DIABETIC NEPHROPATHY
     Dosage: 250 MG, BID
     Route: 048
     Dates: start: 20101001, end: 20110901
  3. IRBESARTAN. [Concomitant]
     Active Substance: IRBESARTAN
     Indication: HYPERTENSION
     Dosage: 300 MG, BID
     Route: 048
     Dates: start: 200903
  4. ASPIRIN. [Concomitant]
     Active Substance: ASPIRIN
     Indication: DIABETIC VASCULAR DISORDER
     Dosage: 0.1 G, QD
     Route: 048
     Dates: start: 2009
  5. PROBUCOL [Suspect]
     Active Substance: PROBUCOL
     Dosage: 250 MG, BID
     Route: 048
     Dates: start: 20110924
  6. NIFEDIPINE. [Concomitant]
     Active Substance: NIFEDIPINE
     Indication: HYPERTENSION
     Dosage: 30 MG, QD
     Route: 048
     Dates: start: 201108
  7. INSULIN GLARGINE [Concomitant]
     Active Substance: INSULIN GLARGINE
     Indication: HYPERGLYCAEMIA
     Dosage: 12 DF, QD
     Route: 058
     Dates: start: 2009
  8. CILOSTAZOL. [Suspect]
     Active Substance: CILOSTAZOL
     Dosage: 100 MG, BID
     Route: 048
     Dates: start: 20110924
  9. CALCIUM DOBESILATE [Concomitant]
     Active Substance: CALCIUM DOBESILATE
     Indication: DIABETIC RETINOPATHY
     Dosage: 1 DF, TID
     Route: 048
     Dates: start: 201103, end: 201201

REACTIONS (2)
  - Hypoglycaemia [Recovered/Resolved]
  - Blood creatine phosphokinase increased [Recovered/Resolved]

NARRATIVE: CASE EVENT DATE: 20101029
